FAERS Safety Report 5226355-6 (Version None)
Quarter: 2007Q1

REPORT INFORMATION
  Report Type: 
  Country: None (occurrence: None)
  Receive Date: 20070129
  Receipt Date: 20070119
  Transmission Date: 20070707
  Serious: Yes (Other)
  Sender: FDA-Public Use
  Company Number: S06-USA-05213-02

PATIENT
  Sex: Female

DRUGS (1)
  1. LEXAPRO [Suspect]

REACTIONS (2)
  - BLOOD CREATINE INCREASED [None]
  - RENAL DISORDER [None]
